FAERS Safety Report 9779029 (Version 2)
Quarter: 2014Q1

REPORT INFORMATION
  Report Type: Report from Study
  Country: CA (occurrence: CA)
  Receive Date: 20131223
  Receipt Date: 20140203
  Transmission Date: 20141002
  Serious: Yes (Other)
  Sender: FDA-Public Use
  Company Number: CA-MPIJNJ-2013JNJ001056

PATIENT
  Sex: 0

DRUGS (5)
  1. VELCADE [Suspect]
     Indication: PLASMA CELL MYELOMA
     Route: 065
  2. MELPHALAN [Suspect]
     Indication: PLASMA CELL MYELOMA
     Route: 065
  3. PREDNISONE [Suspect]
     Indication: PLASMA CELL MYELOMA
     Route: 065
  4. CYCLOPHOSPHAMID [Concomitant]
     Indication: PLASMA CELL MYELOMA
  5. PREDNISONE [Concomitant]
     Indication: PLASMA CELL MYELOMA

REACTIONS (4)
  - Bone marrow failure [Unknown]
  - Drug intolerance [Unknown]
  - Neuropathy peripheral [Unknown]
  - Dysphagia [Recovering/Resolving]
